FAERS Safety Report 9691067 (Version 3)
Quarter: 2013Q4

REPORT INFORMATION
  Report Type: Spontaneous
  Country: JP (occurrence: JP)
  Receive Date: 20131115
  Receipt Date: 20131129
  Transmission Date: 20140711
  Serious: Yes (Hospitalization)
  Sender: FDA-Public Use
  Company Number: JP-JNJFOC-20131018413

PATIENT
  Age: 63 Year
  Sex: Male
  Weight: 66 kg

DRUGS (16)
  1. REMICADE [Suspect]
     Indication: COLITIS ULCERATIVE
     Dosage: PREVIOUSLY REPORTED AS 5 MG/KG
     Route: 042
     Dates: start: 20120802
  2. REMICADE [Suspect]
     Indication: COLITIS ULCERATIVE
     Dosage: PREVIOUSLY REPORTED AS 5 MG/KG
     Route: 042
     Dates: start: 20120719
  3. REMICADE [Suspect]
     Indication: COLITIS ULCERATIVE
     Route: 042
     Dates: start: 20120907
  4. IMURAN [Suspect]
     Indication: COLITIS ULCERATIVE
     Route: 048
     Dates: start: 20120719, end: 20120827
  5. PENTASA [Concomitant]
     Indication: COLITIS ULCERATIVE
     Dosage: 4000MG, 2000MG
     Route: 048
     Dates: start: 20120709
  6. TAKEPRON [Concomitant]
     Indication: GASTROOESOPHAGEAL REFLUX DISEASE
     Dosage: 15MG, 15MG
     Route: 048
     Dates: start: 20120709
  7. FOSFOMYCIN [Concomitant]
     Route: 065
  8. CRAVIT [Concomitant]
     Route: 048
  9. CLARITH [Concomitant]
     Route: 048
  10. INSULIN [Concomitant]
     Dosage: 051
     Route: 065
  11. MEROPENEM [Concomitant]
     Dosage: 051
     Route: 065
  12. RED CELLS MAP [Concomitant]
     Dosage: 051
     Route: 065
  13. ALBUMIN [Concomitant]
     Dosage: 051
     Route: 065
  14. BERIZYM [Concomitant]
     Route: 048
  15. LEBENIN [Concomitant]
     Route: 048
  16. LEBENIN [Concomitant]
     Dosage: 3G, 1G
     Route: 048

REACTIONS (4)
  - Sepsis [Recovering/Resolving]
  - Haemoglobin decreased [Unknown]
  - Pulmonary embolism [Unknown]
  - Blood albumin decreased [Unknown]
